FAERS Safety Report 6153423-7 (Version None)
Quarter: 2009Q2

REPORT INFORMATION
  Report Type: 
  Country: None (occurrence: None)
  Receive Date: 20090409
  Receipt Date: 20090409
  Transmission Date: 20091009
  Serious: No
  Sender: FDA-Public Use
  Company Number: None

PATIENT
  Sex: Male
  Weight: 70.4 kg

DRUGS (3)
  1. ELOXATIN [Suspect]
     Dosage: 440 MG
     Dates: end: 20061218
  2. FLUOROURACIL [Suspect]
     Dosage: 17112 MG
     Dates: end: 20061218
  3. LEUCOVORIN CALCIUM [Suspect]
     Dosage: 3056 MG
     Dates: end: 20061218

REACTIONS (1)
  - PERIPHERAL MOTOR NEUROPATHY [None]
